FAERS Safety Report 13766603 (Version 1)
Quarter: 2017Q3

REPORT INFORMATION
  Report Type: Report from Study
  Country: AR (occurrence: AR)
  Receive Date: 20170719
  Receipt Date: 20170719
  Transmission Date: 20171127
  Serious: Yes (Other)
  Sender: FDA-Public Use
  Company Number: PHHY2017AR105412

PATIENT
  Sex: Male

DRUGS (1)
  1. DIOVAN [Suspect]
     Active Substance: VALSARTAN
     Indication: HYPERTENSION
     Dosage: 160 MG, QD
     Route: 065

REACTIONS (5)
  - Headache [Unknown]
  - Renal aneurysm [Recovering/Resolving]
  - Renal hypertension [Recovering/Resolving]
  - Blood pressure increased [Unknown]
  - Creatinine urine abnormal [Unknown]
